FAERS Safety Report 7157193-5 (Version None)
Quarter: 2010Q4

REPORT INFORMATION
  Report Type: 
  Country: None (occurrence: None)
  Receive Date: 20101214
  Receipt Date: 20091218
  Transmission Date: 20110411
  Serious: No
  Sender: FDA-Public Use
  Company Number: US-ASTRAZENECA-2009SE32853

PATIENT
  Age: 85 Year
  Sex: Female
  Weight: 62.6 kg

DRUGS (3)
  1. CRESTOR [Suspect]
     Indication: BLOOD CHOLESTEROL INCREASED
     Route: 048
  2. ATENOLOL [Concomitant]
     Dosage: DAILY
  3. SYNTHROID [Concomitant]
     Indication: THYROID DISORDER
     Dosage: DAILY

REACTIONS (2)
  - DAYDREAMING [None]
  - INSOMNIA [None]
